FAERS Safety Report 9337866 (Version 1)
Quarter: 2013Q2

REPORT INFORMATION
  Report Type: Spontaneous
  Country: AU (occurrence: AU)
  Receive Date: 20130608
  Receipt Date: 20130608
  Transmission Date: 20140414
  Serious: Yes (Death, Other)
  Sender: FDA-Public Use
  Company Number: AU-ROXANE LABORATORIES, INC.-2013-RO-00908RO

PATIENT
  Age: 48 Year
  Sex: Male

DRUGS (8)
  1. METHADONE [Suspect]
     Indication: DRUG DEPENDENCE
     Dosage: 40 MG
  2. METHADONE [Suspect]
     Dosage: 140 MG
  3. METHADONE [Suspect]
     Dosage: 160 MG
  4. INDOMETHACIN [Concomitant]
     Dosage: 75 MG
  5. TRAMADOL [Concomitant]
     Dosage: 150 MG
  6. ESOMEPRAZOLE [Concomitant]
     Dosage: 40 MG
  7. VENLAFAXINE [Concomitant]
     Dosage: 150 MG
  8. OXYCODONE [Concomitant]
     Dosage: 20 MG

REACTIONS (7)
  - Gastrointestinal haemorrhage [Fatal]
  - Neoplasm malignant [Fatal]
  - Metastases to liver [Fatal]
  - Breakthrough pain [Recovered/Resolved]
  - Anxiety [Unknown]
  - Agitation [Recovered/Resolved]
  - Restlessness [Recovered/Resolved]
